FAERS Safety Report 8107484-6 (Version None)
Quarter: 2011Q4

REPORT INFORMATION
  Report Type: 
  Country: None (occurrence: None)
  Receive Date: 20111227
  Receipt Date: 20111122
  Transmission Date: 20120403
  Serious: No
  Sender: FDA-Public Use
  Company Number: PHEH2011US010212

PATIENT
  Sex: Female
  Weight: 80.7 kg

DRUGS (1)
  1. GILENYA [Suspect]
     Indication: MULTIPLE SCLEROSIS
     Dosage: 0.5 MG, QD ,ORAL
     Route: 048

REACTIONS (2)
  - DIZZINESS [None]
  - VOMITING [None]
